FAERS Safety Report 7083700-7 (Version None)
Quarter: 2010Q4

REPORT INFORMATION
  Report Type: 
  Country: None (occurrence: None)
  Receive Date: 20101104
  Receipt Date: 20101103
  Transmission Date: 20110411
  Serious: Yes (Death, Hospitalization)
  Sender: FDA-Public Use
  Company Number: HQWYE539407JUN07

PATIENT
  Sex: Male
  Weight: 67 kg

DRUGS (10)
  1. GEMTUZUMAB OZOGAMICIN [Suspect]
     Indication: ACUTE MYELOID LEUKAEMIA
     Dosage: ACTUAL DOSE GIVEN .051 MG (CUMULATIVE DOSE GIVEN 15.500 MG)
     Route: 042
     Dates: start: 20070302, end: 20070101
  2. GEMTUZUMAB OZOGAMICIN [Suspect]
     Dosage: CUMULATIVE DOSE GIVEN 5 MG DURING CONSOLIDATION
     Route: 042
     Dates: start: 20070520, end: 20070520
  3. MITOXANTRONE HYDROCHLORIDE [Concomitant]
     Indication: ACUTE MYELOID LEUKAEMIA
     Dosage: NOT PROVIDED
     Route: 042
     Dates: start: 20070331, end: 20070101
  4. TAZOCIN [Concomitant]
     Dosage: UNKNOWN
     Route: 065
     Dates: start: 20070527, end: 20070530
  5. ETOPOSIDE [Concomitant]
     Indication: ACUTE MYELOID LEUKAEMIA
     Dosage: ACTUAL DOSE GIVEN ON LAST DAY OF ADMINISTRATION 170 MG (CUMULATIVE DOSE GIVEN 510 MG)
     Route: 042
     Dates: start: 20070521, end: 20070523
  6. ETOPOSIDE [Concomitant]
     Dosage: NOT PROVIDED
     Route: 042
     Dates: start: 20070331, end: 20070101
  7. ARA-C [Concomitant]
     Indication: ACUTE MYELOID LEUKAEMIA
     Dosage: ACTUAL DOSE GIVEN 47.500 MG (CUMULATIVE DOSE GIVEN 480.750 MG)
     Route: 042
     Dates: start: 20070331, end: 20070101
  8. ARA-C [Concomitant]
     Dosage: ACTUAL DOSE GIVEN ON LAST ADMINISTRATION 170 MG (CUMULATIVE DOSE 850 MG)
     Route: 042
     Dates: start: 20070521, end: 20070525
  9. IDARUBICIN HCL [Concomitant]
     Indication: ACUTE MYELOID LEUKAEMIA
     Dosage: ACTUAL DOSE GIVEN 13.600 MG (CUMULATIVE DOSE GIVEN 40.800 MG)
     Route: 042
     Dates: start: 20070331, end: 20070505
  10. IDARUBICIN HCL [Concomitant]
     Dosage: ACTUAL DOSE GIVEN ON THE LAST DAY OF ADMINISTRATION 13.6MG (CUMULATIVE DOSE GIVEN 40.8MG)
     Route: 042
     Dates: start: 20070521, end: 20070525

REACTIONS (2)
  - ATRIAL FIBRILLATION [None]
  - CARDIAC ARREST [None]
